FAERS Safety Report 9925364 (Version 1)
Quarter: 2014Q1

REPORT INFORMATION
  Report Type: Spontaneous
  Country: FR (occurrence: FR)
  Receive Date: 20140226
  Receipt Date: 20140226
  Transmission Date: 20141002
  Serious: Yes (Life-Threatening, Hospitalization)
  Sender: FDA-Public Use
  Company Number: FR-PFIZER INC-2014054718

PATIENT
  Age: 84 Year
  Sex: Female

DRUGS (7)
  1. ESTRACYT [Suspect]
     Dosage: 280 MG, 2X/DAY (140 MG CAPSULE, 2 CAPSULES TWICE DAILY)
     Route: 048
     Dates: end: 20131031
  2. PREDNISOLONE [Concomitant]
     Dosage: UNK
  3. KARDEGIC [Concomitant]
     Dosage: UNK
  4. BISOPROLOL [Concomitant]
     Dosage: UNK
  5. AMLOR [Concomitant]
     Dosage: UNK
  6. EFFEXOR [Concomitant]
     Dosage: UNK
  7. INEXIUM /01479302/ [Concomitant]
     Dosage: UNK

REACTIONS (2)
  - Pulmonary embolism [Unknown]
  - Off label use [Recovered/Resolved]
